FAERS Safety Report 6413398-X (Version None)
Quarter: 2009Q4

REPORT INFORMATION
  Report Type: 
  Country: None (occurrence: None)
  Receive Date: 20091026
  Receipt Date: 20091014
  Transmission Date: 20100525
  Serious: Yes (Other)
  Sender: FDA-Public Use
  Company Number: DE-CELGENEUS-062-21880-09051742

PATIENT
  Sex: Male
  Weight: 80 kg

DRUGS (7)
  1. REVLIMID [Suspect]
     Indication: MULTIPLE MYELOMA
     Route: 048
     Dates: start: 20090513, end: 20090520
  2. REVLIMID [Suspect]
     Route: 048
     Dates: start: 20090529
  3. DEXAMETHASONE [Suspect]
     Indication: MULTIPLE MYELOMA
     Route: 048
     Dates: start: 20090514, end: 20090517
  4. DEXAMETHASONE [Suspect]
     Route: 048
     Dates: start: 20090529
  5. DEXAMETHASONE [Suspect]
     Route: 048
     Dates: start: 20090625
  6. METAMIZOL [Concomitant]
     Indication: DRUG USE FOR UNKNOWN INDICATION
     Route: 065
     Dates: end: 20090521
  7. IBUPROFEN [Concomitant]
     Indication: DRUG USE FOR UNKNOWN INDICATION
     Route: 065
     Dates: start: 20090521

REACTIONS (2)
  - ANXIETY DISORDER [None]
  - VERTIGO [None]
